FAERS Safety Report 4870634-9 (Version None)
Quarter: 2005Q4

REPORT INFORMATION
  Report Type: 
  Country: None (occurrence: None)
  Receive Date: 20051228
  Receipt Date: 20051219
  Transmission Date: 20060501
  Serious: Yes (Hospitalization)
  Sender: FDA-Public Use
  Company Number: SUSI-2005-00944

PATIENT
  Age: 66 Year
  Sex: Male

DRUGS (3)
  1. PENTASA [Suspect]
     Indication: COLITIS ULCERATIVE
     Dosage: 750 MG,  3X/DAY:TID, ORAL
     Route: 048
     Dates: start: 20050915, end: 20051208
  2. PRAVASTATIN [Concomitant]
  3. SULFASALAZINE [Concomitant]

REACTIONS (1)
  - INTERSTITIAL LUNG DISEASE [None]
